FAERS Safety Report 8184251-9 (Version None)
Quarter: 2012Q1

REPORT INFORMATION
  Report Type: 
  Country: None (occurrence: None)
  Receive Date: 20120305
  Receipt Date: 20120226
  Transmission Date: 20120608
  Serious: Yes (Hospitalization, Other)
  Sender: FDA-Public Use
  Company Number: KR-JNJFOC-20111011746

PATIENT
  Age: 47 Year
  Sex: Female

DRUGS (6)
  1. RISPERDAL [Suspect]
     Route: 048
     Dates: start: 20010629, end: 20010928
  2. RISPERDAL [Suspect]
     Indication: SCHIZOPHRENIA
     Route: 048
     Dates: start: 20021006, end: 20030129
  3. RISPERDAL [Suspect]
     Route: 048
     Dates: start: 20030201, end: 20100101
  4. RISPERDAL [Suspect]
     Route: 048
     Dates: start: 20011001, end: 20020501
  5. NEMONAPRIDE [Suspect]
     Route: 065
     Dates: start: 20021006, end: 20030129
  6. NEMONAPRIDE [Suspect]
     Indication: SCHIZOPHRENIA
     Route: 065
     Dates: start: 20030201, end: 20100101

REACTIONS (6)
  - SEDATION [None]
  - DRY MOUTH [None]
  - BREAST NEOPLASM [None]
  - INAPPROPRIATE SCHEDULE OF DRUG ADMINISTRATION [None]
  - PSYCHOTIC DISORDER [None]
  - DIZZINESS [None]
